FAERS Safety Report 22895559 (Version 4)
Quarter: 2023Q4

REPORT INFORMATION
  Report Type: Spontaneous
  Country: JP (occurrence: None)
  Receive Date: 20230901
  Receipt Date: 20231107
  Transmission Date: 20240110
  Serious: Yes (Hospitalization, Other)
  Sender: FDA-Public Use
  Company Number: 2023A195523

PATIENT
  Age: 78 Year
  Sex: Male
  Weight: 62 kg

DRUGS (6)
  1. LYNPARZA [Suspect]
     Active Substance: OLAPARIB
     Indication: Hormone-refractory prostate cancer
     Route: 048
     Dates: start: 20230605, end: 20230714
  2. LYNPARZA [Suspect]
     Active Substance: OLAPARIB
     Indication: Hormone-refractory prostate cancer
     Route: 048
     Dates: start: 20231002
  3. PREDONINE [Concomitant]
     Active Substance: PREDNISOLONE
     Route: 048
     Dates: start: 202205
  4. BONALON [Concomitant]
     Active Substance: ALENDRONATE SODIUM
     Route: 048
     Dates: start: 20220802
  5. LOXOPROFEN SODIUM [Concomitant]
     Active Substance: LOXOPROFEN SODIUM
     Route: 048
     Dates: end: 20230611
  6. REBAMIPIDE [Concomitant]
     Active Substance: REBAMIPIDE
     Route: 048
     Dates: end: 20230611

REACTIONS (9)
  - Interstitial lung disease [Recovered/Resolved]
  - Anaemia [Recovered/Resolved]
  - Malignant neoplasm progression [Unknown]
  - Malaise [Unknown]
  - Back pain [Recovering/Resolving]
  - Oedema [Unknown]
  - Nasopharyngitis [Unknown]
  - Arthralgia [Unknown]
  - Blood pressure decreased [Unknown]

NARRATIVE: CASE EVENT DATE: 20230612
